FAERS Safety Report 6031253-4 (Version None)
Quarter: 2009Q1

REPORT INFORMATION
  Report Type: 
  Country: None (occurrence: None)
  Receive Date: 20090108
  Receipt Date: 20081230
  Transmission Date: 20090719
  Serious: Yes (Hospitalization)
  Sender: FDA-Public Use
  Company Number: US-BIOGENIDEC-2008BI006736

PATIENT
  Age: 59 Year
  Sex: Female

DRUGS (4)
  1. AVONEX [Suspect]
     Indication: MULTIPLE SCLEROSIS
     Route: 030
     Dates: end: 20080301
  2. AVONEX [Suspect]
     Route: 030
     Dates: start: 20010601, end: 20030801
  3. AVONEX [Suspect]
     Route: 030
     Dates: start: 20030901, end: 20050101
  4. COUMADIN [Concomitant]
     Indication: DRUG USE FOR UNKNOWN INDICATION

REACTIONS (2)
  - FEAR [None]
  - LARGE INTESTINAL HAEMORRHAGE [None]
